FAERS Safety Report 23499147 (Version 2)
Quarter: 2024Q3

REPORT INFORMATION
  Report Type: Spontaneous
  Country: US (occurrence: US)
  Receive Date: 20240208
  Receipt Date: 20240827
  Transmission Date: 20241017
  Serious: No
  Sender: ROCHE
  Company Number: US-002147023-NVSC2023US233731

PATIENT
  Age: 91 Year
  Sex: Female

DRUGS (5)
  1. RANIBIZUMAB [Suspect]
     Active Substance: RANIBIZUMAB
     Indication: Neovascular age-related macular degeneration
     Route: 065
  2. RANIBIZUMAB [Suspect]
     Active Substance: RANIBIZUMAB
  3. RANIBIZUMAB [Suspect]
     Active Substance: RANIBIZUMAB
  4. RANIBIZUMAB [Suspect]
     Active Substance: RANIBIZUMAB
  5. RANIBIZUMAB [Suspect]
     Active Substance: RANIBIZUMAB

REACTIONS (3)
  - Ulcerative keratitis [Unknown]
  - Scleral thinning [Unknown]
  - Conjunctival thinning [Unknown]
